FAERS Safety Report 11349297 (Version 1)
Quarter: 2015Q3

REPORT INFORMATION
  Report Type: Spontaneous
  Country: FR (occurrence: FR)
  Receive Date: 20150807
  Receipt Date: 20150807
  Transmission Date: 20151125
  Serious: Yes (Hospitalization)
  Sender: FDA-Public Use
  Company Number: FR-ROCHE-1618749

PATIENT
  Age: 89 Year
  Sex: Female

DRUGS (6)
  1. TOCO [Concomitant]
     Active Substance: UNSPECIFIED INGREDIENT
     Route: 065
  2. ROCEPHINE [Suspect]
     Active Substance: CEFTRIAXONE SODIUM
     Indication: LUNG DISORDER
     Route: 042
     Dates: start: 20150630, end: 20150716
  3. PRAVASTATIN [Concomitant]
     Active Substance: PRAVASTATIN\PRAVASTATIN SODIUM
     Route: 065
     Dates: end: 20150716
  4. ASPEGIC [Concomitant]
     Active Substance: ASPIRIN DL-LYSINE
     Route: 065
  5. TAREG [Concomitant]
     Active Substance: VALSARTAN
     Route: 065
     Dates: end: 20150716
  6. DOLIPRANE [Concomitant]
     Active Substance: ACETAMINOPHEN
     Route: 065

REACTIONS (1)
  - Crystal arthropathy [Unknown]

NARRATIVE: CASE EVENT DATE: 20150704
